FAERS Safety Report 4941549-2 (Version None)
Quarter: 2006Q1

REPORT INFORMATION
  Report Type: 
  Country: None (occurrence: None)
  Receive Date: 20060308
  Receipt Date: 20060224
  Transmission Date: 20060701
  Serious: Yes (Death, Disabling)
  Sender: FDA-Public Use
  Company Number: 2006JP000195

PATIENT
  Age: 88 Year
  Sex: Female

DRUGS (5)
  1. FUNGUARD(MICAFUNGIN) INJECTION [Suspect]
     Indication: BLOOD BETA-D-GLUCAN INCREASED
     Dosage: 50 MG, UID/QD, IV DRIP
     Route: 041
     Dates: start: 20060113, end: 20060115
  2. MINOCYCLINE HCL [Suspect]
     Indication: STAPHYLOCOCCAL INFECTION
     Dosage: 100 MG, BID, IV DRIP
     Route: 041
     Dates: start: 20060113, end: 20060117
  3. FOY (GABEXATE MESILATE) INJECTION [Concomitant]
  4. MEROPEN (MEROPENEM) INJECTION [Concomitant]
  5. DALACIN C INJECTION [Concomitant]

REACTIONS (5)
  - ALANINE AMINOTRANSFERASE INCREASED [None]
  - ASPARTATE AMINOTRANSFERASE INCREASED [None]
  - DISSEMINATED INTRAVASCULAR COAGULATION [None]
  - MULTI-ORGAN FAILURE [None]
  - RESPIRATORY ARREST [None]
